FAERS Safety Report 4295771-1 (Version None)
Quarter: 2004Q1

REPORT INFORMATION
  Report Type: 
  Country: None (occurrence: None)
  Receive Date: 20040216
  Receipt Date: 20031031
  Transmission Date: 20041129
  Serious: No
  Sender: FDA-Public Use
  Company Number: US-GLAXOSMITHKLINE-A0432415A

PATIENT
  Age: 35 Year
  Sex: Male

DRUGS (3)
  1. LAMICTAL [Suspect]
     Indication: DEPRESSION
     Route: 048
     Dates: start: 20030829, end: 20031103
  2. LEXAPRO [Concomitant]
     Dosage: 20MG UNKNOWN
     Route: 048
  3. DEPAKOTE ER [Concomitant]
     Dates: start: 20030625

REACTIONS (2)
  - LYMPH NODE PAIN [None]
  - PYREXIA [None]
